FAERS Safety Report 10231526 (Version 1)
Quarter: 2014Q2

REPORT INFORMATION
  Report Type: Spontaneous
  Country: HU (occurrence: HU)
  Receive Date: 20140611
  Receipt Date: 20140611
  Transmission Date: 20141212
  Serious: Yes (Other)
  Sender: FDA-Public Use
  Company Number: PHHY2014HU068837

PATIENT
  Age: 39 Year
  Sex: Female

DRUGS (3)
  1. INDAPAMIDE [Suspect]
     Indication: HYPERTENSION
     Dosage: 1.5 MG, UNK
  2. BISOPROLOL [Concomitant]
     Dosage: 2.5 MG, BID
  3. MEDAZEPAM [Concomitant]
     Dosage: 10 MG, BID

REACTIONS (13)
  - Myopia [Recovering/Resolving]
  - Visual impairment [Recovering/Resolving]
  - Blindness [Recovering/Resolving]
  - Eye pain [Recovering/Resolving]
  - Heterophoria [Recovering/Resolving]
  - Flat anterior chamber of eye [Recovering/Resolving]
  - Choroidal detachment [Recovering/Resolving]
  - Effusion [Recovering/Resolving]
  - Headache [Recovering/Resolving]
  - Eye oedema [Recovering/Resolving]
  - Mydriasis [Unknown]
  - Accommodation disorder [Recovering/Resolving]
  - Ciliary body disorder [Recovering/Resolving]
